FAERS Safety Report 8027372-3 (Version None)
Quarter: 2012Q1

REPORT INFORMATION
  Report Type: 
  Country: None (occurrence: None)
  Receive Date: 20120106
  Receipt Date: 20120103
  Transmission Date: 20120608
  Serious: Yes (Death, Hospitalization, Other)
  Sender: FDA-Public Use
  Company Number: US-ASTELLAS-2011US007986

PATIENT
  Sex: Female

DRUGS (24)
  1. ERLOTINIB HYDROCHLORIDE [Suspect]
     Indication: NON-SMALL CELL LUNG CANCER
     Dosage: 100 MG, UID/QD
     Route: 048
     Dates: start: 20111031
  2. ASPIRIN [Concomitant]
     Indication: PRODUCT USED FOR UNKNOWN INDICATION
     Dosage: 325 MG, UID/QD
     Route: 065
  3. PROTONIX [Concomitant]
     Indication: PRODUCT USED FOR UNKNOWN INDICATION
     Dosage: 40 MG, UID/QD
     Route: 065
  4. ACETAMINOPHEN [Concomitant]
     Indication: PRODUCT USED FOR UNKNOWN INDICATION
     Dosage: 650 Q 6 HOURS PRN, UNK
     Route: 065
  5. PERCOCET [Concomitant]
     Indication: PAIN
     Dosage: 5/325 MG, 1-2 DF Q 4 HOURS PRN
     Route: 065
  6. LIPITOR [Concomitant]
     Indication: PRODUCT USED FOR UNKNOWN INDICATION
     Dosage: 20 MG, UID/QD
     Route: 065
  7. ADVAIR DISKUS 100/50 [Concomitant]
     Indication: PRODUCT USED FOR UNKNOWN INDICATION
     Dosage: 1 DF, BID
     Route: 055
  8. ZOFRAN [Concomitant]
     Indication: NAUSEA
     Dosage: 4 MG Q 6 HOURS PRN
     Route: 065
  9. ZOFRAN [Concomitant]
     Indication: VOMITING
  10. PROAIR HFA [Concomitant]
     Indication: DYSPNOEA
     Dosage: 1 DF Q 6 HOURS PRN
     Route: 055
  11. MULTI-VITAMINS [Concomitant]
     Indication: PRODUCT USED FOR UNKNOWN INDICATION
     Dosage: 1 DF, UID/QD
     Route: 065
  12. FENTANYL [Concomitant]
     Indication: PRODUCT USED FOR UNKNOWN INDICATION
     Dosage: 75 UG, Q3D
     Route: 061
  13. LEVOTHYROXINE SODIUM [Concomitant]
     Indication: PRODUCT USED FOR UNKNOWN INDICATION
     Dosage: 125 UG, UID/QD
     Route: 065
  14. NYSTATIN [Concomitant]
     Indication: PRODUCT USED FOR UNKNOWN INDICATION
     Dosage: 1 DF, BID
     Route: 065
  15. SPIRIVA [Concomitant]
     Indication: PRODUCT USED FOR UNKNOWN INDICATION
     Dosage: 1 DF, UID/QD
     Route: 055
  16. SENOKOT [Concomitant]
     Indication: PRODUCT USED FOR UNKNOWN INDICATION
     Dosage: 1 DF, UID/QD
     Route: 065
  17. AMBIEN [Concomitant]
     Indication: INSOMNIA
     Dosage: 5 MG, PRN
     Route: 065
  18. REGLAN [Concomitant]
     Indication: NAUSEA
     Dosage: 10 MG Q 6 HOURS PRN
     Route: 065
  19. CARDIZEM CD [Concomitant]
     Indication: PRODUCT USED FOR UNKNOWN INDICATION
     Dosage: 120 MG, UID/QD
     Route: 065
  20. CALCIUM VIT D [Concomitant]
     Indication: PRODUCT USED FOR UNKNOWN INDICATION
     Dosage: UNK
     Route: 065
  21. ATIVAN [Concomitant]
     Indication: ANXIETY
     Dosage: 1 MG Q 4 HOURS PRN
     Route: 065
  22. REGLAN [Concomitant]
     Indication: VOMITING
  23. ATENOLOL [Concomitant]
     Indication: PRODUCT USED FOR UNKNOWN INDICATION
     Dosage: 50 MG, UID/QD
     Route: 065
  24. SENOKOT [Concomitant]
     Dosage: 2 DF BID PRN
     Route: 065

REACTIONS (10)
  - MALIGNANT PLEURAL EFFUSION [None]
  - BACTERIAL DISEASE CARRIER [None]
  - HYPOTENSION [None]
  - RENAL FAILURE ACUTE [None]
  - ACUTE RESPIRATORY FAILURE [None]
  - CARDIAC DISORDER [None]
  - DECUBITUS ULCER [None]
  - INCORRECT DOSE ADMINISTERED [None]
  - ATRIAL FIBRILLATION [None]
  - NEOPLASM MALIGNANT [None]
